FAERS Safety Report 24560597 (Version 2)
Quarter: 2024Q4

REPORT INFORMATION
  Report Type: Report from Study
  Country: US (occurrence: US)
  Receive Date: 20241029
  Receipt Date: 20241218
  Transmission Date: 20250115
  Serious: Yes (Death)
  Sender: BAYER HEALTHCARE PHARMACEUTICALS INC.
  Company Number: US-BAYER-2024A154056

PATIENT
  Age: 55 Year
  Sex: Female
  Weight: 122.45 kg

DRUGS (14)
  1. ADEMPAS [Suspect]
     Active Substance: RIOCIGUAT
     Indication: Pulmonary arterial hypertension
     Dosage: UNK
     Dates: start: 20240910
  2. ADEMPAS [Suspect]
     Active Substance: RIOCIGUAT
     Indication: Pulmonary arterial hypertension
     Dosage: 1 MG, TID
     Route: 048
     Dates: end: 202410
  3. LETAIRIS [Concomitant]
     Active Substance: AMBRISENTAN
  4. SIMVASTATIN [Concomitant]
     Active Substance: SIMVASTATIN
  5. POTASSIUM CHLORIDE [Concomitant]
     Active Substance: POTASSIUM CHLORIDE
  6. LASIX [Concomitant]
     Active Substance: FUROSEMIDE
  7. VITAMIN D2 [Concomitant]
     Active Substance: ERGOCALCIFEROL
  8. HUMULIN N [Concomitant]
     Active Substance: INSULIN HUMAN
  9. GLIPIZIDE [Concomitant]
     Active Substance: GLIPIZIDE
  10. OXYGEN [Concomitant]
     Active Substance: OXYGEN
  11. BUMETANIDE [Concomitant]
     Active Substance: BUMETANIDE
  12. COZAAR [Concomitant]
     Active Substance: LOSARTAN POTASSIUM
  13. ASPIRIN [Concomitant]
     Active Substance: ASPIRIN
  14. FERROUS SULFATE [Concomitant]
     Active Substance: FERROUS SULFATE

REACTIONS (1)
  - Cardiac failure [Fatal]

NARRATIVE: CASE EVENT DATE: 20241012
